FAERS Safety Report 6278196-9 (Version None)
Quarter: 2009Q3

REPORT INFORMATION
  Report Type: 
  Country: None (occurrence: None)
  Receive Date: 20090722
  Receipt Date: 20090717
  Transmission Date: 20100115
  Serious: Yes (Other)
  Sender: FDA-Public Use
  Company Number: US-ASTRAZENECA-2009UW12588

PATIENT
  Age: 59 Year
  Sex: Male

DRUGS (9)
  1. SYMBICORT [Suspect]
     Indication: ASTHMA
     Dosage: 160/4.5 UG - TWO PUFFS TWICE A DAY
     Route: 055
     Dates: start: 20090201
  2. ALLERX [Concomitant]
  3. SALINE SINUS RINSE [Concomitant]
  4. NASACORT AQ [Concomitant]
     Indication: RHINITIS ALLERGIC
     Dosage: 2 SPRAYS DAILY
  5. ULTRAVIOLET LIGHT THERAPY [Concomitant]
     Indication: DERMATITIS
  6. TESTOSTERONE [Concomitant]
     Indication: HYPOGONADISM
  7. LUNESTA [Concomitant]
     Indication: INSOMNIA
  8. AMBIEN [Concomitant]
     Indication: INSOMNIA
  9. ASPIRIN [Concomitant]

REACTIONS (9)
  - CONFUSIONAL STATE [None]
  - DIPLOPIA [None]
  - DISORIENTATION [None]
  - DIZZINESS [None]
  - DYSGEUSIA [None]
  - HYPERHIDROSIS [None]
  - HYPOAESTHESIA [None]
  - PARAESTHESIA [None]
  - SYNCOPE [None]
